FAERS Safety Report 9916872 (Version 2)
Quarter: 2014Q1

REPORT INFORMATION
  Report Type: Spontaneous
  Country: US (occurrence: US)
  Receive Date: 20140221
  Receipt Date: 20140221
  Transmission Date: 20141002
  Serious: Yes (Other)
  Sender: FDA-Public Use
  Company Number: US-MYLANLABS-2013S1018986

PATIENT
  Age: 19 Year
  Sex: Male
  Weight: 77.11 kg

DRUGS (4)
  1. LAMOTRIGINE TABLETS [Suspect]
     Indication: CONVULSION
     Route: 048
     Dates: start: 20130709
  2. DILANTIN [Suspect]
     Dates: start: 2013
  3. HUMALOG [Concomitant]
     Indication: DIABETES MELLITUS
     Route: 058
  4. LANTUS [Concomitant]
     Indication: DIABETES MELLITUS
     Dosage: GIVEN PRIOR TO EACH MEAL
     Route: 058

REACTIONS (1)
  - Hyperglycaemia [Not Recovered/Not Resolved]
